FAERS Safety Report 8063877-7 (Version None)
Quarter: 2012Q1

REPORT INFORMATION
  Report Type: 
  Country: None (occurrence: None)
  Receive Date: 20120123
  Receipt Date: 20120113
  Transmission Date: 20120608
  Serious: Yes (Hospitalization, Other)
  Sender: FDA-Public Use
  Company Number: JP-TEVA-2011005142

PATIENT
  Sex: Male
  Weight: 70 kg

DRUGS (9)
  1. ALLOPURINOL [Concomitant]
     Dates: start: 20110121, end: 20110307
  2. ACYCLOVIR [Concomitant]
  3. BENDAMUSTINE [Suspect]
     Indication: MANTLE CELL LYMPHOMA
     Route: 042
     Dates: start: 20110124, end: 20110225
  4. METHYLPREDNISOLONE [Concomitant]
     Dates: start: 20110123, end: 20110125
  5. BENDAMUSTINE [Suspect]
     Route: 042
     Dates: start: 20110416, end: 20110417
  6. BENDAMUSTINE [Suspect]
     Route: 042
     Dates: start: 20110325, end: 20110326
  7. BENDAMUSTINE [Suspect]
     Route: 042
     Dates: start: 20110603, end: 20110707
  8. PREDNISOLONE [Concomitant]
  9. JUZENTAIHOTO [Concomitant]

REACTIONS (5)
  - WHITE BLOOD CELL COUNT DECREASED [None]
  - FEBRILE NEUTROPENIA [None]
  - BONE MARROW FAILURE [None]
  - NEUTROPHIL COUNT DECREASED [None]
  - PLATELET COUNT DECREASED [None]
